FAERS Safety Report 7974152-0 (Version None)
Quarter: 2011Q4

REPORT INFORMATION
  Report Type: 
  Country: None (occurrence: None)
  Receive Date: 20111213
  Receipt Date: 20111206
  Transmission Date: 20120403
  Serious: Yes (Hospitalization, Other)
  Sender: FDA-Public Use
  Company Number: US-PFIZER INC-2010057707

PATIENT
  Sex: Female

DRUGS (5)
  1. DILANTIN [Suspect]
     Dosage: 300 MG, UNK
     Route: 048
     Dates: start: 20070920
  2. DILANTIN KAPSEAL [Suspect]
     Indication: CONVULSION
     Dosage: 100 MG, AT BEDTIME
     Route: 048
     Dates: start: 20070920
  3. DILANTIN [Suspect]
     Indication: CONVULSION
     Dosage: 200 MG, AT BED TIME
     Route: 048
  4. DILANTIN [Suspect]
     Dosage: 100 MG, UNK
     Route: 048
     Dates: start: 20070721
  5. DILANTIN [Suspect]
     Dosage: 3 TABLETS AT BEDTIME
     Route: 048

REACTIONS (1)
  - STEVENS-JOHNSON SYNDROME [None]
